FAERS Safety Report 24044164 (Version 2)
Quarter: 2024Q4

REPORT INFORMATION
  Report Type: Report from Study
  Country: EG (occurrence: EG)
  Receive Date: 20240703
  Receipt Date: 20241216
  Transmission Date: 20250114
  Serious: Yes (Disabling)
  Sender: ROCHE
  Company Number: EG-ROCHE-10000012117

PATIENT
  Age: 37 Year
  Sex: Male
  Weight: 60 kg

DRUGS (1)
  1. OCREVUS [Suspect]
     Active Substance: OCRELIZUMAB
     Indication: Multiple sclerosis
     Route: 042
     Dates: start: 20200109

REACTIONS (4)
  - Nervous system disorder [Not Recovered/Not Resolved]
  - Gait disturbance [Not Recovered/Not Resolved]
  - Inappropriate schedule of product administration [Unknown]
  - Amnesia [Not Recovered/Not Resolved]

NARRATIVE: CASE EVENT DATE: 20231221
